FAERS Safety Report 9893234 (Version 1)
Quarter: 2014Q1

REPORT INFORMATION
  Report Type: Spontaneous
  Country: FR (occurrence: FR)
  Receive Date: 20140213
  Receipt Date: 20140213
  Transmission Date: 20141002
  Serious: Yes (Death)
  Sender: FDA-Public Use
  Company Number: PHHY2014FR015610

PATIENT
  Age: 68 Year
  Sex: Male
  Weight: 96.8 kg

DRUGS (10)
  1. TAREG [Suspect]
     Dosage: 1 DF, QD
     Route: 048
  2. BACLOFEN [Suspect]
     Indication: ALCOHOLISM
     Dosage: 5 DF, DAILY
     Route: 048
     Dates: start: 2011
  3. AMIODARONE [Concomitant]
     Dosage: UNK
  4. PREVISCAN [Concomitant]
     Dosage: UNK UKN, UNK
  5. TANAKAN [Concomitant]
     Dosage: UNK UKN, UNK
  6. PANTOPRAZOLE [Concomitant]
     Dosage: UNK UKN, UNK
  7. TELFAST [Concomitant]
     Dosage: UNK UKN, UNK
  8. MOVICOL [Concomitant]
     Dosage: UNK UKN, UNK
  9. BIO FOLIC ACID [Concomitant]
     Dosage: UNK UKN, UNK
  10. TAMSULOSINE [Concomitant]
     Dosage: UNK UKN, UNK

REACTIONS (2)
  - Multi-organ failure [Fatal]
  - Hyperthermia [Fatal]
